FAERS Safety Report 7425493-7 (Version None)
Quarter: 2011Q2

REPORT INFORMATION
  Report Type: 
  Country: None (occurrence: None)
  Receive Date: 20110420
  Receipt Date: 20110414
  Transmission Date: 20111010
  Serious: Yes (Hospitalization, Other)
  Sender: FDA-Public Use
  Company Number: US-NOVOPROD-312723

PATIENT
  Age: 60 Year
  Sex: Female
  Weight: 146 kg

DRUGS (10)
  1. LEVOTHYROXINE SODIUM [Concomitant]
     Indication: HYPOTHYROIDISM
     Dosage: 150 UG, QD
  2. ASPIRIN [Concomitant]
     Indication: CORONARY ARTERY DISEASE
     Dosage: 325 MG, QD
  3. SIMVASTATIN [Concomitant]
     Indication: HYPERLIPIDAEMIA
     Dosage: 80 MG, QD
  4. METFORMIN [Concomitant]
     Indication: DIABETES MELLITUS
     Dosage: 1000 MG, BID
  5. SPIRONOLACTONE [Concomitant]
     Indication: OEDEMA
     Dosage: 50 MG, PRN
  6. HUMALOG MIX                        /01293501/ [Concomitant]
     Indication: DIABETES MELLITUS
     Dosage: 60 U, QD
     Dates: start: 20100531, end: 20100601
  7. VICTOZA [Suspect]
     Indication: TYPE 2 DIABETES MELLITUS
     Dosage: 1.8 MG, QD
     Route: 058
     Dates: start: 20100531, end: 20100601
  8. GABAPENTIN [Concomitant]
     Indication: DIABETIC NEUROPATHY
     Dosage: 300 MG, QID
  9. AMARYL [Concomitant]
     Indication: DIABETES MELLITUS
     Dosage: 4 MG, QD
  10. PIOGLITAZONE [Concomitant]
     Dosage: 15 MG, QD

REACTIONS (1)
  - PANCREATITIS ACUTE [None]
